FAERS Safety Report 6739514-8 (Version None)
Quarter: 2010Q2

REPORT INFORMATION
  Report Type: 
  Country: None (occurrence: None)
  Receive Date: 20100525
  Receipt Date: 20100513
  Transmission Date: 20101027
  Serious: Yes (Death, Hospitalization)
  Sender: FDA-Public Use
  Company Number: BR-GENZYME-FABR-1001389

PATIENT
  Sex: Male
  Weight: 47.5 kg

DRUGS (3)
  1. FABRAZYME [Suspect]
     Indication: FABRY'S DISEASE
     Dosage: 0.7 MG/KG, Q2W
     Dates: start: 20100301, end: 20100504
  2. FABRAZYME [Suspect]
     Dosage: UNK
     Route: 042
     Dates: start: 20060801, end: 20100301
  3. ANTIHYPERTENSIVES (NOS) [Concomitant]
     Indication: DRUG USE FOR UNKNOWN INDICATION

REACTIONS (3)
  - CARDIO-RESPIRATORY ARREST [None]
  - HYPERTENSIVE CRISIS [None]
  - MULTI-ORGAN FAILURE [None]
